FAERS Safety Report 21307919 (Version 1)
Quarter: 2022Q3

REPORT INFORMATION
  Report Type: Report from Study
  Country: RO (occurrence: RO)
  Receive Date: 20220908
  Receipt Date: 20220908
  Transmission Date: 20221026
  Serious: Yes (Other)
  Sender: FDA-Public Use
  Company Number: RO-ABBVIE-22K-135-4531279-00

PATIENT
  Age: 58 Year
  Sex: Female

DRUGS (3)
  1. HUMIRA [Suspect]
     Active Substance: ADALIMUMAB
     Indication: Psoriatic arthropathy
     Route: 058
     Dates: start: 20200720, end: 202206
  2. HUMIRA [Suspect]
     Active Substance: ADALIMUMAB
     Route: 058
     Dates: start: 202206
  3. ISONIAZID [Suspect]
     Active Substance: ISONIAZID
     Indication: Mycobacterium tuberculosis complex test positive
     Route: 048
     Dates: start: 202207

REACTIONS (6)
  - Mycobacterium tuberculosis complex test positive [Not Recovered/Not Resolved]
  - Dizziness [Not Recovered/Not Resolved]
  - Spinal deformity [Not Recovered/Not Resolved]
  - Nasopharyngitis [Recovered/Resolved]
  - Pain in extremity [Not Recovered/Not Resolved]
  - Spinal pain [Not Recovered/Not Resolved]

NARRATIVE: CASE EVENT DATE: 20220601
